FAERS Safety Report 17992639 (Version 1)
Quarter: 2020Q3

REPORT INFORMATION
  Report Type: Spontaneous
  Country: US (occurrence: US)
  Receive Date: 20200708
  Receipt Date: 20200708
  Transmission Date: 20201103
  Serious: No
  Sender: FDA-Public Use
  Company Number: US-GW PHARMA-202007USGW02385

PATIENT

DRUGS (2)
  1. EPIDIOLEX [Suspect]
     Active Substance: CANNABIDIOL
     Indication: PRODUCT USED FOR UNKNOWN INDICATION
     Dosage: INITIAL DOSE, UNK
     Route: 048
     Dates: end: 202006
  2. EPIDIOLEX [Suspect]
     Active Substance: CANNABIDIOL
     Dosage: INCREASED DOSE (MAXIMUM DOSE FOR HER AGE), UNK
     Route: 048
     Dates: start: 202006

REACTIONS (2)
  - Seizure [Unknown]
  - Seizure [Recovered/Resolved]

NARRATIVE: CASE EVENT DATE: 20200617
